FAERS Safety Report 21560562 (Version 1)
Quarter: 2022Q4

REPORT INFORMATION
  Report Type: Report from Study
  Country: CA (occurrence: CA)
  Receive Date: 20221107
  Receipt Date: 20221107
  Transmission Date: 20230113
  Serious: Yes (Other)
  Sender: FDA-Public Use
  Company Number: CA-TAKEDA-2022TUS081833

PATIENT
  Age: 47 Year
  Sex: Female

DRUGS (4)
  1. VEDOLIZUMAB [Suspect]
     Active Substance: VEDOLIZUMAB
     Indication: Colitis ulcerative
     Dosage: 300 MILLIGRAM
     Route: 042
     Dates: start: 20220601
  2. Salofalk [Concomitant]
     Dosage: UNK
     Dates: start: 201901, end: 201902
  3. Salofalk [Concomitant]
     Dosage: UNK
     Dates: start: 201909
  4. MESALAMINE [Concomitant]
     Active Substance: MESALAMINE
     Dosage: 300 MILLIGRAM
     Route: 042
     Dates: end: 20220930

REACTIONS (1)
  - Haematochezia [Recovered/Resolved]
